FAERS Safety Report 25920166 (Version 2)
Quarter: 2025Q4

REPORT INFORMATION
  Report Type: Report from Study
  Country: US (occurrence: US)
  Receive Date: 20251014
  Receipt Date: 20251016
  Transmission Date: 20260117
  Serious: Yes (Hospitalization)
  Sender: ABBVIE
  Company Number: US-ABBVIE-6501112

PATIENT
  Age: 79 Year
  Sex: Male

DRUGS (2)
  1. RINVOQ [Suspect]
     Active Substance: UPADACITINIB
     Indication: Crohn^s disease
     Dosage: DRUG END DATE--2025
     Route: 048
     Dates: start: 20250401
  2. RINVOQ [Suspect]
     Active Substance: UPADACITINIB
     Indication: Crohn^s disease
     Dosage: UNKNOWN
     Route: 048
     Dates: start: 202505

REACTIONS (6)
  - Chronic inflammatory demyelinating polyradiculoneuropathy [Recovering/Resolving]
  - Fatigue [Unknown]
  - Mobility decreased [Recovering/Resolving]
  - Balance disorder [Recovering/Resolving]
  - Polyneuropathy [Recovering/Resolving]
  - Muscular weakness [Unknown]

NARRATIVE: CASE EVENT DATE: 20250101
